FAERS Safety Report 4583847-0 (Version None)
Quarter: 2005Q1

REPORT INFORMATION
  Report Type: 
  Country: None (occurrence: None)
  Receive Date: 20050216
  Receipt Date: 20050204
  Transmission Date: 20050727
  Serious: Yes (Hospitalization)
  Sender: FDA-Public Use
  Company Number: US-JNJFOC-20050203140

PATIENT
  Sex: Female
  Weight: 52.2 kg

DRUGS (23)
  1. TYLOX [Suspect]
  2. TYLOX [Suspect]
  3. TYLOX [Suspect]
     Indication: BACK PAIN
  4. CELEXA [Concomitant]
  5. TRAZODONE [Concomitant]
  6. IMMUNOGLOBULIN [Concomitant]
     Route: 042
  7. PREDNISONE [Concomitant]
  8. OXYCONTIN [Concomitant]
  9. ACYCLOVIR [Concomitant]
  10. DURAGESIC [Concomitant]
  11. DURAGESIC [Concomitant]
  12. DURAGESIC [Concomitant]
  13. PROAMTIN [Concomitant]
     Indication: HYPOTENSION
  14. REMERON [Concomitant]
     Dosage: QHS
     Route: 049
  15. FLORINEF [Concomitant]
  16. POTASSIUM CHLORIDE [Concomitant]
  17. RESTORIL [Concomitant]
     Dosage: HOUR SLEEP
  18. CIPRO [Concomitant]
  19. VALIUM [Concomitant]
  20. VISTARIL [Concomitant]
  21. ROXICET [Concomitant]
  22. ROXICET [Concomitant]
  23. MACROBID [Concomitant]

REACTIONS (22)
  - ANXIETY [None]
  - ARTHRALGIA [None]
  - ARTHROPATHY [None]
  - BACK PAIN [None]
  - CHROMATURIA [None]
  - CHRONIC INFLAMMATORY DEMYELINATING POLYRADICULONEUROPATHY [None]
  - CONSTIPATION [None]
  - DEPRESSION [None]
  - FOOT FRACTURE [None]
  - GUILLAIN-BARRE SYNDROME [None]
  - HERPES SIMPLEX [None]
  - IRRITABILITY [None]
  - KIDNEY INFECTION [None]
  - MIDDLE INSOMNIA [None]
  - MOOD ALTERED [None]
  - MOOD SWINGS [None]
  - NAUSEA [None]
  - ORTHOSTATIC HYPOTENSION [None]
  - PYREXIA [None]
  - SYNCOPE [None]
  - URINARY TRACT INFECTION [None]
  - VOMITING [None]
